FAERS Safety Report 6414883-7 (Version None)
Quarter: 2009Q4

REPORT INFORMATION
  Report Type: 
  Country: None (occurrence: None)
  Receive Date: 20091026
  Receipt Date: 20091026
  Transmission Date: 20100525
  Serious: Yes (Other)
  Sender: FDA-Public Use
  Company Number: None

PATIENT
  Age: 54 Year
  Sex: Female
  Weight: 102.5129 kg

DRUGS (1)
  1. LEVOTHYROXINE SODIUM [Suspect]
     Indication: HYPOTHYROIDISM
     Dosage: VARIED 100 MCG; 112 MCG; 125 M DAILY PO
     Route: 048
     Dates: start: 20090301, end: 20091001

REACTIONS (1)
  - BLOOD THYROID STIMULATING HORMONE ABNORMAL [None]
